FAERS Safety Report 9541702 (Version 2)
Quarter: 2013Q4

REPORT INFORMATION
  Report Type: Spontaneous
  Country: US (occurrence: US)
  Receive Date: 20130923
  Receipt Date: 20131001
  Transmission Date: 20140711
  Serious: Yes (Death, Other)
  Sender: FDA-Public Use
  Company Number: US-ROCHE-1279285

PATIENT
  Age: 68 Year
  Sex: Female

DRUGS (19)
  1. XOLAIR [Suspect]
     Indication: ASTHMA
     Dosage: DOSE 150MG:TAKES 375MG 1 Q 3 WEEKS
     Route: 058
  2. NEURONTIN (UNITED STATES) [Concomitant]
  3. HYDROCODONE HCL [Concomitant]
  4. ALBUTEROL SULFATE [Concomitant]
  5. ADVAIR DISKUS [Concomitant]
  6. NASACORT AQ [Concomitant]
  7. SPIRIVA HANDIHALER [Concomitant]
  8. METFORMIN HYDROCHLORIDE [Concomitant]
  9. LASIX [Concomitant]
  10. PLAQUENIL [Concomitant]
  11. MONTELUKAST SODIUM [Concomitant]
  12. MAXAIR INHALER [Concomitant]
  13. COUMADIN [Concomitant]
  14. CELEXA (UNITED STATES) [Concomitant]
  15. POTASSIUM CHLORIDE [Concomitant]
  16. CALTRATE 600 [Concomitant]
  17. ZYRTEC [Concomitant]
  18. IBUPROFEN [Concomitant]
  19. PREDNISONE [Concomitant]

REACTIONS (4)
  - Cardiac failure congestive [Fatal]
  - Chronic obstructive pulmonary disease [Fatal]
  - Myocardial infarction [Unknown]
  - Lung disorder [Unknown]
